FAERS Safety Report 6637700 (Version 2)
Quarter: 2019Q3

REPORT INFORMATION
  Report Type: Spontaneous
  Country: GB (occurrence: GB)
  Receive Date: 20080512
  Receipt Date: 20190801
  Transmission Date: 20191005
  Serious: Yes (Disabling, Other)
  Sender: FDA-Public Use
  Company Number: GB-TEVA-170933ISR

PATIENT
  Age: 53 Year
  Sex: Male
  Weight: 80 kg

DRUGS (5)
  1. ACETYLSALICLIC ACID [Concomitant]
     Indication: MYOCARDIAL ISCHAEMIA
     Route: 048
     Dates: start: 20060613
  2. VIAZEM XL [Concomitant]
     Active Substance: DILTIAZEM HYDROCHLORIDE
     Indication: MYOCARDIAL ISCHAEMIA
     Route: 048
     Dates: start: 20060907
  3. ASPIRIN. [Concomitant]
     Active Substance: ASPIRIN
  4. SYNALAR [Concomitant]
     Active Substance: FLUOCINOLONE ACETONIDE
     Indication: PSORIASIS
     Route: 061
     Dates: start: 20070424
  5. SIMVASTATIN. [Suspect]
     Active Substance: SIMVASTATIN
     Indication: MYOCARDIAL ISCHAEMIA
     Route: 048
     Dates: start: 20080218, end: 200803

REACTIONS (1)
  - Psoriasis [Recovered/Resolved]

NARRATIVE: CASE EVENT DATE: 20080225
